FAERS Safety Report 10629018 (Version 1)
Quarter: 2014Q4

REPORT INFORMATION
  Report Type: Spontaneous
  Country: US (occurrence: US)
  Receive Date: 20141205
  Receipt Date: 20141205
  Transmission Date: 20150529
  Serious: No
  Sender: FDA-Public Use
  Company Number: US-BRISTOL-MYERS SQUIBB COMPANY-21473046

PATIENT
  Age: 49 Year
  Sex: Female
  Weight: 65.76 kg

DRUGS (1)
  1. KENALOG-10 [Suspect]
     Active Substance: TRIAMCINOLONE ACETONIDE
     Indication: SCAR
     Dosage: KENALOG-20?LAST INJECTION:OCT2014

REACTIONS (3)
  - Pruritus [Not Recovered/Not Resolved]
  - Urticaria [Unknown]
  - Injection site reaction [Unknown]
